FAERS Safety Report 22366427 (Version 1)
Quarter: 2023Q2

REPORT INFORMATION
  Report Type: Spontaneous
  Country: US (occurrence: US)
  Receive Date: 20230525
  Receipt Date: 20230525
  Transmission Date: 20230722
  Serious: Yes (Hospitalization)
  Sender: FDA-Public Use
  Company Number: US-MYLANLABS-2023M1053525

PATIENT
  Age: 15 Month
  Sex: Male

DRUGS (1)
  1. DESMOPRESSIN [Suspect]
     Active Substance: DESMOPRESSIN
     Indication: Product used for unknown indication
     Dosage: UNK
     Route: 048

REACTIONS (5)
  - Seizure [Recovered/Resolved]
  - Postictal state [Recovering/Resolving]
  - Hyponatraemia [Recovered/Resolved]
  - Somnolence [Recovering/Resolving]
  - Overdose [Recovering/Resolving]
